FAERS Safety Report 11004488 (Version 1)
Quarter: 2015Q2

REPORT INFORMATION
  Report Type: Report from Study
  Country: US (occurrence: US)
  Receive Date: 20150409
  Receipt Date: 20150409
  Transmission Date: 20150821
  Serious: Yes (Other)
  Sender: FDA-Public Use
  Company Number: US-ALEXION-A201501144

PATIENT

DRUGS (1)
  1. SOLIRIS [Suspect]
     Active Substance: ECULIZUMAB
     Indication: PRODUCT USED FOR UNKNOWN INDICATION
     Route: 042

REACTIONS (6)
  - Urethral haemorrhage [Unknown]
  - Peripheral swelling [Unknown]
  - Nasopharyngitis [Not Recovered/Not Resolved]
  - Stress [Unknown]
  - Fatigue [Unknown]
  - Swelling face [Unknown]
